FAERS Safety Report 7046992 (Version 5)
Quarter: 2012Q4

REPORT INFORMATION
  Report Type: 
  Country: US (occurrence: US)
  Receive Date: 20090710
  Receipt Date: 20121017
  Transmission Date: 20130627
  Serious: Yes (Hospitalization, Other)
  Sender: FDA-Public Use
  Company Number: US-BAYER-200925484NA

PATIENT
  Age: 34 Year
  Sex: Female
  Weight: 49 kg

DRUGS (54)
  1. MAGNEVIST [Suspect]
     Indication: NUCLEAR MAGNETIC RESONANCE IMAGING ABDOMINAL
     Dosage: UNK
     Dates: start: 20021129, end: 20021129
  2. MAGNEVIST [Suspect]
     Indication: NUCLEAR MAGNETIC RESONANCE IMAGING BRAIN
     Route: 042
     Dates: start: 20030926, end: 20030926
  3. MAGNEVIST [Suspect]
     Indication: ANGIOGRAM
     Dosage: 15 ml, UNK
     Route: 042
     Dates: start: 20031206, end: 20031206
  4. OMNISCAN [Suspect]
     Indication: ANGIOGRAM
  5. OMNISCAN [Suspect]
     Indication: NUCLEAR MAGNETIC RESONANCE IMAGING
  6. OMNISCAN [Suspect]
     Indication: COMPUTERISED TOMOGRAM
  7. OPTIMARK [Suspect]
     Indication: ANGIOGRAM
  8. OPTIMARK [Suspect]
     Indication: NUCLEAR MAGNETIC RESONANCE IMAGING
  9. OPTIMARK [Suspect]
     Indication: COMPUTERISED TOMOGRAM
  10. MULTIHANCE [GADOBENIC ACID MEGLUMINE] [Suspect]
     Indication: COMPUTERISED TOMOGRAM
  11. MULTIHANCE [GADOBENIC ACID MEGLUMINE] [Suspect]
     Indication: ANGIOGRAM
  12. MULTIHANCE [GADOBENIC ACID MEGLUMINE] [Suspect]
     Indication: NUCLEAR MAGNETIC RESONANCE IMAGING
  13. PROHANCE [GADOTERIDOL] [Suspect]
     Indication: ANGIOGRAM
  14. PROHANCE [GADOTERIDOL] [Suspect]
     Indication: NUCLEAR MAGNETIC RESONANCE IMAGING
  15. PROHANCE [GADOTERIDOL] [Suspect]
     Indication: COMPUTERISED TOMOGRAM
  16. ANALGESICS [Concomitant]
  17. RENAGEL [SEVELAMER] [Concomitant]
     Dosage: 3 TO 6 TABLETS WITH MEALS
     Route: 048
  18. PHOSLO [Concomitant]
     Dosage: 667 mg, QD
     Route: 048
  19. HYDROCORTISONE [Concomitant]
     Dosage: 20 mg in the morning and 10 mg at night
     Route: 048
  20. FLUDROCORTISONE [Concomitant]
     Dosage: 0.1 mg, QD
     Route: 048
  21. EPOGEN [Concomitant]
     Dosage: every Wednesday
     Route: 042
  22. COUMADIN [Concomitant]
     Indication: COAGULOPATHY
     Dosage: 2 mg, QD
     Route: 048
     Dates: start: 2000
  23. PROAMATINE [Concomitant]
     Dosage: 30 MG EVERY M-W-F
     Route: 048
  24. DIATX [Concomitant]
     Dosage: 1 DF, QD
     Route: 048
  25. NEPHRO-VITE [VITAMINS NOS] [Concomitant]
     Dosage: 1 DF, QD
  26. SYNTHROID [Concomitant]
     Dosage: 200 mcg daily and 150 mcg on Sunday
     Route: 048
  27. SYNTHROID [Concomitant]
     Dosage: 125 mcg
  28. PRILOSEC [Concomitant]
     Dosage: 40 mg (Daily Dose), QD, oral
     Route: 048
  29. PRILOSEC [Concomitant]
     Dosage: 20 mg, UNK
  30. ZEMPLAR [Concomitant]
     Dosage: DURING DIALYSIS
     Route: 042
  31. VENOFER [Concomitant]
     Dosage: 100 mng (Daily Dose), OW, intravenous
     Route: 042
  32. FERRLECIT [Concomitant]
     Dosage: 100 mg (Daily Dose), every Friday
     Route: 048
  33. ASPIRIN [Concomitant]
     Dosage: 81 mg, QD
     Route: 048
  34. ARANESP [Concomitant]
     Dosage: 40 ?g (Daily Dose), OW, subcutaneous
     Route: 058
     Dates: start: 20051024
  35. PROVERA [Concomitant]
     Dosage: 10 MG 5 DAYS EVERY OTHER MONTH
     Route: 048
     Dates: start: 2003
  36. VANCOMYCIN [Concomitant]
  37. NORVASC [Concomitant]
     Dosage: 10 mg daily
     Dates: start: 1995
  38. VASOTEC [ENALAPRIL MALEATE] [Concomitant]
     Dosage: 10 mg daily
     Dates: start: 1999
  39. VISIPAQUE [IODIXANOL] [Concomitant]
     Indication: VENOGRAM
  40. LEVOTHROID [Concomitant]
  41. ROXICET [Concomitant]
     Dosage: 5/325 mg (1-2 tabs Q 4-6 Hours)
  42. PREDNISONE [Concomitant]
     Dosage: 7.5 mg Mon/Wed/Fri and 2.5 mg prn other days
  43. DIATX [Concomitant]
     Dosage: 10 mg, Q3WK
  44. LOVENOX [Concomitant]
  45. NYSTATIN [Concomitant]
  46. CEFEPIME [Concomitant]
     Dosage: 1 g, QD
  47. FLAGYL [Concomitant]
     Dosage: 5001 mg, Q8H
  48. DIFLUCAN [Concomitant]
     Dosage: 200 mg, QD
  49. VICODIN [Concomitant]
  50. DEMEROL [Concomitant]
  51. PROTONIX [Concomitant]
     Dosage: 40 mg, QD
  52. ZOFRAN [Concomitant]
  53. ATIVAN [Concomitant]
     Dosage: UNK UNK, PRN
  54. DEXAMETHASONE [Concomitant]

REACTIONS (24)
  - Nephrogenic systemic fibrosis [None]
  - Motor dysfunction [None]
  - Pain [None]
  - Deformity [None]
  - Scar [None]
  - Skin hypopigmentation [None]
  - Rash [None]
  - Skin exfoliation [None]
  - Erythema [None]
  - Skin induration [None]
  - Skin plaque [None]
  - Skin fibrosis [None]
  - Rash papular [None]
  - Skin atrophy [None]
  - Polyarthritis [None]
  - Pain in extremity [None]
  - Oedema peripheral [None]
  - Muscle tightness [None]
  - Musculoskeletal stiffness [None]
  - Skin tightness [None]
  - Skin hypertrophy [None]
  - Sclerodactylia [None]
  - Septic shock [None]
  - Uraemic encephalopathy [None]
